FAERS Safety Report 8957164 (Version 1)
Quarter: 2012Q4

REPORT INFORMATION
  Report Type: 
  Country: FR (occurrence: FR)
  Receive Date: 20121210
  Receipt Date: 20121210
  Transmission Date: 20130627
  Serious: Yes (Other)
  Sender: FDA-Public Use
  Company Number: FR-ROCHE-1165927

PATIENT
  Age: 67 Year
  Sex: Male

DRUGS (9)
  1. ZELBORAF [Suspect]
     Indication: PRODUCT USED FOR UNKNOWN INDICATION
     Route: 048
     Dates: start: 201105
  2. IXPRIM [Concomitant]
     Route: 048
     Dates: start: 200904, end: 201008
  3. DOLIPRANE [Concomitant]
     Route: 048
     Dates: start: 200904, end: 201008
  4. INEXIUM [Concomitant]
     Route: 048
     Dates: start: 200904, end: 201008
  5. DETICENE [Concomitant]
     Route: 042
     Dates: start: 200904, end: 201008
  6. CISPLATINE [Concomitant]
     Route: 042
     Dates: start: 200904, end: 200907
  7. MUPHORAN [Concomitant]
     Route: 042
     Dates: start: 2010
  8. CARMUSTINE [Concomitant]
     Route: 042
     Dates: start: 200904, end: 200907
  9. IPILIMUMAB [Concomitant]
     Route: 042
     Dates: start: 2010, end: 2011

REACTIONS (1)
  - Sarcoidosis [Not Recovered/Not Resolved]
